FAERS Safety Report 6309681-9 (Version None)
Quarter: 2009Q3

REPORT INFORMATION
  Report Type: 
  Country: None (occurrence: None)
  Receive Date: 20090814
  Receipt Date: 20090810
  Transmission Date: 20100115
  Serious: Yes (Death, Hospitalization, Other)
  Sender: FDA-Public Use
  Company Number: PHHY2009BR33721

PATIENT
  Sex: Female
  Weight: 57 kg

DRUGS (20)
  1. ACLASTA [Suspect]
     Indication: OSTEOPOROSIS
     Dosage: UNK
     Dates: start: 20080822
  2. FOSAMAX PLUS D [Concomitant]
     Indication: OSTEOPOROSIS
     Dosage: 1 TABLET PER WEEK
     Route: 048
  3. FORASEQ [Concomitant]
     Indication: ASTHMA
     Dosage: EVERY 12 HOURS
  4. SPIRIVA [Concomitant]
     Indication: ASTHMA
     Dosage: 1 TIME DAILY
  5. GLIBENCLAMIDE [Concomitant]
     Indication: DIABETES MELLITUS
     Dosage: 1 TABLET DAILY
     Route: 048
  6. GABAPENTIN [Concomitant]
     Indication: NEUROPATHY PERIPHERAL
     Dosage: 1 CAPSULE (300 MG) DAILY
     Route: 048
  7. GABAPENTIN [Concomitant]
     Dosage: 1 CAPSULE (600MG) DAILY
     Route: 048
  8. CELEBRA [Concomitant]
     Indication: MUSCULOSKELETAL PAIN
     Dosage: 1 TABLET DAILY
     Route: 048
  9. PARIET [Concomitant]
     Indication: PROPHYLAXIS AGAINST GASTROINTESTINAL ULCER
     Dosage: 1 TABLET DAILY
     Route: 048
  10. OMEPRAZOL [Concomitant]
     Indication: PROPHYLAXIS AGAINST GASTROINTESTINAL ULCER
     Dosage: UNK
     Route: 048
  11. METOCLOPRAMIDE HYDROCHLORIDE [Concomitant]
     Indication: GASTRIC DISORDER
     Dosage: WHEN NECESSARY
     Route: 048
  12. DIMETICONE [Concomitant]
     Indication: GASTRIC DISORDER
     Dosage: WHEN NECESSARY
     Route: 048
  13. ACID CELLULASE [Concomitant]
     Indication: GASTRIC DISORDER
     Dosage: WHEN NECESSARY
     Route: 048
  14. PANCREATIN [Concomitant]
     Indication: GASTRIC DISORDER
     Dosage: WHEN NECESSARY
     Route: 048
  15. PEPSIN [Concomitant]
     Indication: GASTRIC DISORDER
     Dosage: WHEN NECESSARY
     Route: 048
  16. DIOVAN [Concomitant]
     Indication: HYPERTENSION
     Dosage: 1 TABLET DAILY
     Route: 048
  17. NATRILIX SR [Concomitant]
     Indication: HYPERTENSION
     Dosage: 1 TABLET DAILY
     Route: 048
  18. NICORD [Concomitant]
     Dosage: 1 TABLET DAILY
     Route: 048
  19. ANCORON [Concomitant]
     Dosage: 1 TABLET DAILY, MONDAY TO FRIDAY
     Route: 048
  20. PREMEDISM [Concomitant]
     Indication: MUSCULOSKELETAL PAIN
     Dosage: 1 TABLET DAILY
     Route: 048

REACTIONS (6)
  - AORTIC ANEURYSM [None]
  - BONE PAIN [None]
  - DEATH [None]
  - INFARCTION [None]
  - PROSTHESIS IMPLANTATION [None]
  - VEIN DISORDER [None]
